FAERS Safety Report 5140427-6 (Version None)
Quarter: 2006Q4

REPORT INFORMATION
  Report Type: 
  Country: None (occurrence: None)
  Receive Date: 20061031
  Receipt Date: 20061024
  Transmission Date: 20070319
  Serious: Yes (Other)
  Sender: FDA-Public Use
  Company Number: FR-BRISTOL-MYERS SQUIBB COMPANY-13555057

PATIENT
  Age: 38 Year
  Sex: Male

DRUGS (4)
  1. ATAZANAVIR [Suspect]
     Dates: start: 20040901
  2. RITONAVIR [Concomitant]
     Dates: start: 20040901
  3. EMTRICITABINE [Concomitant]
     Dates: start: 20040901
  4. TENOFOVIR [Concomitant]
     Dates: start: 20040901

REACTIONS (1)
  - CALCULUS URINARY [None]
